FAERS Safety Report 10353283 (Version 3)
Quarter: 2014Q3

REPORT INFORMATION
  Report Type: Report from Study
  Country: TW (occurrence: TW)
  Receive Date: 20140731
  Receipt Date: 20140822
  Transmission Date: 20150326
  Serious: Yes (Other)
  Sender: FDA-Public Use
  Company Number: PHHY2014TW077148

PATIENT
  Age: 80 Year
  Sex: Female
  Weight: 36.9 kg

DRUGS (5)
  1. ACLASTA [Suspect]
     Active Substance: ZOLEDRONIC ACID
     Dosage: 15 MG, UNK
     Route: 042
     Dates: start: 20120720
  2. DICLOXACILLIN [Concomitant]
     Active Substance: DICLOXACILLIN
  3. ANALGESICS [Concomitant]
     Active Substance: UNSPECIFIED INGREDIENT
  4. ANGIOTENSIN II ANTAGONISTS [Concomitant]
     Active Substance: UNSPECIFIED INGREDIENT
  5. ACE INHIBITORS [Concomitant]
     Active Substance: UNSPECIFIED INGREDIENT

REACTIONS (17)
  - Infection [Unknown]
  - Swelling [Unknown]
  - Abscess limb [Not Recovered/Not Resolved]
  - Oedema [Unknown]
  - Aortic arteriosclerosis [Unknown]
  - Musculoskeletal discomfort [Unknown]
  - Erythema [Recovering/Resolving]
  - Pain in extremity [Unknown]
  - Dysuria [Unknown]
  - Renal failure chronic [Recovering/Resolving]
  - Scoliosis [Unknown]
  - Rash [Unknown]
  - Raynaud^s phenomenon [Unknown]
  - Cellulitis [Not Recovered/Not Resolved]
  - Renal cyst [Unknown]
  - Atrioventricular block [Unknown]
  - Spinal osteoarthritis [Unknown]

NARRATIVE: CASE EVENT DATE: 20130920
